FAERS Safety Report 10011593 (Version 1)
Quarter: 2014Q1

REPORT INFORMATION
  Report Type: Spontaneous
  Country: US (occurrence: US)
  Receive Date: 20140314
  Receipt Date: 20140314
  Transmission Date: 20141002
  Serious: Yes (Other)
  Sender: FDA-Public Use
  Company Number: US-BEH-2014041052

PATIENT
  Sex: Male

DRUGS (1)
  1. ZEMAIRA [Suspect]

REACTIONS (1)
  - Cardiac disorder [Unknown]
